FAERS Safety Report 6252953-7 (Version None)
Quarter: 2009Q3

REPORT INFORMATION
  Report Type: 
  Country: None (occurrence: None)
  Receive Date: 20090701
  Receipt Date: 20090623
  Transmission Date: 20100115
  Serious: Yes (Other)
  Sender: FDA-Public Use
  Company Number: B0568178A

PATIENT
  Sex: Female

DRUGS (1)
  1. ARIXTRA [Suspect]
     Dosage: 7.5MG SINGLE DOSE
     Route: 058
     Dates: start: 20090128, end: 20090128

REACTIONS (7)
  - ANGIOEDEMA [None]
  - DERMATITIS ALLERGIC [None]
  - EYELID OEDEMA [None]
  - LIP OEDEMA [None]
  - OFF LABEL USE [None]
  - PHARYNGEAL OEDEMA [None]
  - URTICARIA [None]
